FAERS Safety Report 9851875 (Version 5)
Quarter: 2014Q4

REPORT INFORMATION
  Report Type: Report from Study
  Country: TH (occurrence: TH)
  Receive Date: 20140129
  Receipt Date: 20141231
  Transmission Date: 20150529
  Serious: Yes (Hospitalization)
  Sender: FDA-Public Use
  Company Number: TH-ROCHE-1190680

PATIENT
  Age: 50 Year
  Sex: Female
  Weight: 54 kg

DRUGS (16)
  1. ONDANSETRON [Concomitant]
     Active Substance: ONDANSETRON
     Indication: PREMEDICATION
     Route: 065
     Dates: start: 20121221, end: 20130523
  2. ACYCLOVIR. [Concomitant]
     Active Substance: ACYCLOVIR
     Indication: HERPES SIMPLEX
     Route: 065
     Dates: start: 20130109, end: 20130926
  3. DEXAMETHASONE. [Concomitant]
     Active Substance: DEXAMETHASONE
     Route: 065
     Dates: start: 20121221, end: 20130523
  4. ALUM MILK [Concomitant]
     Indication: GASTRIC ULCER
     Route: 065
     Dates: start: 20120626, end: 20130627
  5. DEXAMETHASONE. [Concomitant]
     Active Substance: DEXAMETHASONE
     Indication: PREMEDICATION
     Route: 065
     Dates: start: 20121220, end: 20130523
  6. OBINUTUZUMAB [Suspect]
     Active Substance: OBINUTUZUMAB
     Indication: DIFFUSE LARGE B-CELL LYMPHOMA
     Dosage: VOLUME OF LAST OBINUTUZUMAB TAKEN WAS 1000 ML AND DOSE CONCENTRATION OF LAST OBINUTUZUMAB TAKEN WAS
     Route: 042
     Dates: start: 20121220
  7. DOXORUBICIN [Suspect]
     Active Substance: DOXORUBICIN
     Dosage: DOSE REDUCED.
     Route: 042
  8. PARACETAMOL [Concomitant]
     Active Substance: ACETAMINOPHEN
     Indication: PREMEDICATION
     Route: 065
     Dates: start: 20121120, end: 20130523
  9. CYCLOPHOSPHAMIDE. [Suspect]
     Active Substance: CYCLOPHOSPHAMIDE
     Indication: DIFFUSE LARGE B-CELL LYMPHOMA
     Dosage: DOSE OF LAST CYCLOPHOSPHAMIDE TAKEN WAS 826.5 MG ON 05/APR/2013?DOSE OF LAST CYCLOPHOSPHAMIDE TAKEN
     Route: 042
     Dates: start: 20121221
  10. PREDNISONE. [Suspect]
     Active Substance: PREDNISONE
     Indication: DIFFUSE LARGE B-CELL LYMPHOMA
     Dosage: DOSE OF LAST PREDNISONE: 100 MG ON 05/APR/2013?DOSE OF LAST PREDNISONE TAKEN 100MG ON 01/FEB/2013
     Route: 065
     Dates: start: 20121221
  11. MIRACID [Concomitant]
     Indication: PROPHYLAXIS AGAINST GASTROINTESTINAL ULCER
     Route: 065
     Dates: start: 20121219, end: 20130627
  12. CYCLOPHOSPHAMIDE. [Suspect]
     Active Substance: CYCLOPHOSPHAMIDE
     Dosage: DOSE REDUCED.
     Route: 042
  13. DOXORUBICIN [Suspect]
     Active Substance: DOXORUBICIN
     Indication: DIFFUSE LARGE B-CELL LYMPHOMA
     Dosage: DOSE OF LAST DOXORUBICIN TAKEN WAS 55 MG ON 05/APR/2013?DOSE OF LAST DOXORUBICIN TAKEN PRIOR TO EVEN
     Route: 042
     Dates: start: 20121221
  14. VINCRISTINE [Suspect]
     Active Substance: VINCRISTINE
     Indication: DIFFUSE LARGE B-CELL LYMPHOMA
     Dosage: DOSE OF LAST VINCRISTINE TAKEN: 2 MG ON 05/APR/2013?DOSE OF LAST VINCRISTINE TAKEN 2MG ON 01/FEB/201
     Route: 042
     Dates: start: 20121221
  15. BENADRYL (THAILAND) [Concomitant]
     Indication: PREMEDICATION
     Route: 065
     Dates: start: 20121220, end: 20130523
  16. AIR-X [Concomitant]
     Indication: PROPHYLAXIS AGAINST GASTROINTESTINAL ULCER
     Route: 065
     Dates: start: 20121219, end: 20130627

REACTIONS (2)
  - Neutropenia [Recovered/Resolved]
  - Neutropenia [Recovered/Resolved]

NARRATIVE: CASE EVENT DATE: 20130209
